FAERS Safety Report 11234486 (Version 1)
Quarter: 2015Q3

REPORT INFORMATION
  Report Type: Spontaneous
  Country: IT (occurrence: IT)
  Receive Date: 20150702
  Receipt Date: 20150702
  Transmission Date: 20151125
  Serious: Yes (Other)
  Sender: FDA-Public Use
  Company Number: IT-ACTAVIS-2015-13058

PATIENT
  Age: 67 Year
  Sex: Male

DRUGS (2)
  1. DOCOSAHEXAENOIC ACID W/EICOSAPENTAE/07947301/ [Concomitant]
     Indication: PRODUCT USED FOR UNKNOWN INDICATION
     Dosage: UNK UNK, UNKNOWN, FOOD SUPPLEMENT
     Route: 065
  2. CLOPIDOGREL [Suspect]
     Active Substance: CLOPIDOGREL BISULFATE
     Indication: PERIPHERAL ARTERIAL OCCLUSIVE DISEASE
     Dosage: 75 MG, DAILY
     Route: 048
     Dates: start: 20121101, end: 20130512

REACTIONS (4)
  - Abdominal pain upper [Recovering/Resolving]
  - Drug ineffective [Recovering/Resolving]
  - Solar urticaria [Recovering/Resolving]
  - Pruritus [Recovering/Resolving]

NARRATIVE: CASE EVENT DATE: 20130321
